FAERS Safety Report 5275728-4 (Version None)
Quarter: 2007Q1

REPORT INFORMATION
  Report Type: 
  Country: None (occurrence: None)
  Receive Date: 20061213
  Receipt Date: 20040322
  Transmission Date: 20070707
  Serious: Yes (Hospitalization)
  Sender: FDA-Public Use
  Company Number: 2004UW05515

PATIENT
  Age: 36 Year
  Sex: Male

DRUGS (2)
  1. SEROQUEL [Suspect]
  2. ABILIFY [Suspect]

REACTIONS (1)
  - EXTRAPYRAMIDAL DISORDER [None]
